FAERS Safety Report 4596826-4 (Version None)
Quarter: 2005Q1

REPORT INFORMATION
  Report Type: 
  Country: None (occurrence: None)
  Receive Date: 20050228
  Receipt Date: 20050215
  Transmission Date: 20050727
  Serious: Yes (Disabling)
  Sender: FDA-Public Use
  Company Number: 2005032447

PATIENT
  Age: 66 Year
  Sex: Female

DRUGS (5)
  1. CELECOXIB (CELECOXIB) [Suspect]
     Indication: ARTHRITIS
     Dosage: (200 MG) + 400 ORAL
     Route: 048
     Dates: start: 20030926, end: 20041007
  2. CELECOXIB (CELECOXIB) [Suspect]
     Indication: BACK PAIN
     Dosage: (200 MG) + 400 ORAL
     Route: 048
     Dates: start: 20030926, end: 20041007
  3. APOREX (DEXTROPROPOXYPHENE HYDROCHLORIDE, PARACETAMOL) [Concomitant]
  4. BENDROFLUMETHIAZIDE (BENDROFLUMETHIAZIDE) [Concomitant]
  5. OILATUM 1 (PARAFFIN, LIQUID, WOOL FAT) [Concomitant]

REACTIONS (1)
  - TRANSIENT ISCHAEMIC ATTACK [None]
